FAERS Safety Report 14475490 (Version 2)
Quarter: 2018Q1

REPORT INFORMATION
  Report Type: Report from Study
  Country: US (occurrence: US)
  Receive Date: 20180201
  Receipt Date: 20180213
  Transmission Date: 20180509
  Serious: Yes (Death, Other)
  Sender: FDA-Public Use
  Company Number: US-SA-2018SA023697

PATIENT
  Age: 70 Year
  Sex: Male

DRUGS (1)
  1. CERDELGA [Suspect]
     Active Substance: ELIGLUSTAT
     Indication: GAUCHER^S DISEASE TYPE I
     Route: 048
     Dates: start: 20150707, end: 20180122

REACTIONS (2)
  - Loss of consciousness [Unknown]
  - Death [Fatal]

NARRATIVE: CASE EVENT DATE: 20180122
